FAERS Safety Report 9940641 (Version 2)
Quarter: 2014Q1

REPORT INFORMATION
  Report Type: Spontaneous
  Country: US (occurrence: US)
  Receive Date: 20140303
  Receipt Date: 20140331
  Transmission Date: 20141002
  Serious: Yes (Other)
  Sender: FDA-Public Use
  Company Number: US-ELI_LILLY_AND_COMPANY-US201402006452

PATIENT
  Age: 76 Year
  Sex: Female

DRUGS (5)
  1. CYMBALTA [Suspect]
     Indication: DEPRESSION
     Dosage: 60 MG, QD
     Route: 065
     Dates: start: 2012, end: 2013
  2. CYMBALTA [Suspect]
     Dosage: 60 MG, QD
     Route: 065
     Dates: start: 20140218, end: 20140218
  3. PRAVASTATIN [Concomitant]
  4. TRIAMTEREEN/HYDROCHLOOTTHIAZIDE [Concomitant]
  5. LISINOPRIL [Concomitant]

REACTIONS (6)
  - Cataract [Unknown]
  - Presyncope [Unknown]
  - Abdominal pain upper [Not Recovered/Not Resolved]
  - Vomiting [Unknown]
  - Diarrhoea [Unknown]
  - Influenza [Recovered/Resolved]
